FAERS Safety Report 12846852 (Version 1)
Quarter: 2016Q4

REPORT INFORMATION
  Report Type: Spontaneous
  Country: TR (occurrence: TR)
  Receive Date: 20161014
  Receipt Date: 20161014
  Transmission Date: 20170207
  Serious: Yes (Other)
  Sender: FDA-Public Use
  Company Number: TR-AMGEN-TURSP2016141598

PATIENT
  Age: 58 Year
  Sex: Female

DRUGS (16)
  1. NORVASC [Concomitant]
     Active Substance: AMLODIPINE BESYLATE
  2. LEVOTIRON [Concomitant]
     Active Substance: LEVOTHYROXINE SODIUM
  3. ATACAND PLUS [Concomitant]
     Active Substance: CANDESARTAN CILEXETIL\HYDROCHLOROTHIAZIDE
  4. GALVUS [Concomitant]
     Active Substance: VILDAGLIPTIN
  5. FOLBIOL [Concomitant]
     Active Substance: FOLIC ACID
  6. BELOC [Concomitant]
     Active Substance: METOPROLOL TARTRATE
  7. ARAVA [Concomitant]
     Active Substance: LEFLUNOMIDE
  8. SALAZOPYRIN [Concomitant]
     Active Substance: SULFASALAZINE
  9. PREDNOL [Concomitant]
     Active Substance: METHYLPREDNISOLONE
  10. GLIFOR [Concomitant]
     Active Substance: METFORMIN HYDROCHLORIDE
  11. LANTUS [Concomitant]
     Active Substance: INSULIN GLARGINE
  12. INH [Concomitant]
     Active Substance: ISONIAZID
     Dosage: UNK
     Dates: start: 20160815
  13. FOSAVANCE [Concomitant]
     Active Substance: ALENDRONATE SODIUM\CHOLECALCIFEROL
  14. ENBREL [Suspect]
     Active Substance: ETANERCEPT
     Indication: RHEUMATOID ARTHRITIS
     Dosage: 25 MG, WEEKLY
     Route: 058
     Dates: start: 20160905
  15. METHOTREXATE. [Concomitant]
     Active Substance: METHOTREXATE
  16. NEXIUM [Concomitant]
     Active Substance: ESOMEPRAZOLE MAGNESIUM

REACTIONS (3)
  - Condition aggravated [Not Recovered/Not Resolved]
  - Influenza [Not Recovered/Not Resolved]
  - Cataract [Not Recovered/Not Resolved]

NARRATIVE: CASE EVENT DATE: 20160926
